FAERS Safety Report 4298930-7 (Version None)
Quarter: 2004Q1

REPORT INFORMATION
  Report Type: 
  Country: None (occurrence: None)
  Receive Date: 20040217
  Receipt Date: 20040203
  Transmission Date: 20041129
  Serious: Yes (Life-Threatening, Disabling)
  Sender: FDA-Public Use
  Company Number: FRWYE551803FEB04

PATIENT
  Age: 50 Year
  Sex: Male

DRUGS (1)
  1. MINOCIN [Suspect]
     Dosage: 200 MG 1X PER 1 DAY, ORAL
     Route: 048
     Dates: start: 19901028, end: 19901108

REACTIONS (3)
  - EOSINOPHILIC PNEUMONIA [None]
  - RESPIRATORY DISTRESS [None]
  - RESTRICTIVE PULMONARY DISEASE [None]
